FAERS Safety Report 9699306 (Version 1)
Quarter: 2013Q4

REPORT INFORMATION
  Report Type: Spontaneous
  Country: US (occurrence: US)
  Receive Date: 20131120
  Receipt Date: 20131120
  Transmission Date: 20140711
  Serious: No
  Sender: FDA-Public Use
  Company Number: US-GILEAD-2008-0015509

PATIENT
  Age: 74 Year
  Sex: Female
  Weight: 70.76 kg

DRUGS (10)
  1. LETAIRIS [Suspect]
     Indication: PULMONARY ARTERIAL HYPERTENSION
     Route: 048
     Dates: start: 20070809
  2. TOPROL [Concomitant]
     Indication: CARDIAC DISORDER
     Route: 048
  3. COUMADIN [Concomitant]
     Indication: PULMONARY ARTERIAL HYPERTENSION
     Route: 048
  4. PROTONIX [Concomitant]
     Indication: GASTROOESOPHAGEAL REFLUX DISEASE
     Route: 048
  5. REVATIO [Concomitant]
     Indication: PULMONARY ARTERIAL HYPERTENSION
     Route: 048
     Dates: start: 20070108
  6. LASIX [Concomitant]
     Indication: PULMONARY ARTERIAL HYPERTENSION
     Route: 048
  7. FOSAMAX [Concomitant]
     Indication: OSTEOPOROSIS
     Route: 048
  8. POTASSIUM [Concomitant]
     Indication: BLOOD POTASSIUM DECREASED
     Route: 048
  9. CALCIUM [Concomitant]
     Indication: OSTEOPOROSIS
     Route: 048
  10. ASACOL [Concomitant]
     Route: 048

REACTIONS (1)
  - Erythema [Recovered/Resolved]
